FAERS Safety Report 5860297-8 (Version None)
Quarter: 2008Q3

REPORT INFORMATION
  Report Type: 
  Country: None (occurrence: None)
  Receive Date: 20080827
  Receipt Date: 20070820
  Transmission Date: 20090109
  Serious: No
  Sender: FDA-Public Use
  Company Number: US-ABBOTT-07P-163-0378408-00

PATIENT
  Sex: Female
  Weight: 92.5 kg

DRUGS (5)
  1. NIASPAN [Suspect]
     Indication: BLOOD CHOLESTEROL INCREASED
     Route: 048
     Dates: start: 20070811, end: 20070818
  2. METFORMIN HCL [Concomitant]
     Indication: DIABETES MELLITUS
  3. ROSIGLITAZONE MALEATE [Concomitant]
     Indication: DIABETES MELLITUS
  4. ISOSORBIDE DINITRATE [Concomitant]
     Indication: CARDIAC DISORDER
  5. VALSARTAN [Concomitant]
     Indication: BLOOD PRESSURE

REACTIONS (5)
  - HEADACHE [None]
  - HOT FLUSH [None]
  - HYPERHIDROSIS [None]
  - NAUSEA [None]
  - RASH [None]
